FAERS Safety Report 12093741 (Version 1)
Quarter: 2016Q1

REPORT INFORMATION
  Report Type: Spontaneous
  Country: US (occurrence: None)
  Receive Date: 20160218
  Receipt Date: 20160218
  Transmission Date: 20160526
  Serious: No
  Sender: FDA-Public Use
  Company Number: None

PATIENT
  Age: 53 Year
  Sex: Female

DRUGS (1)
  1. ENBREL [Suspect]
     Active Substance: ETANERCEPT
     Indication: RHEUMATOID ARTHRITIS
     Dosage: 4-5 DAYS 50MG WEEKLY SUBCUTANEOUS
     Route: 058

REACTIONS (2)
  - Contusion [None]
  - Erythema [None]

NARRATIVE: CASE EVENT DATE: 20160215
